FAERS Safety Report 6349600-2 (Version None)
Quarter: 2009Q3

REPORT INFORMATION
  Report Type: 
  Country: None (occurrence: None)
  Receive Date: 20090911
  Receipt Date: 20090831
  Transmission Date: 20100115
  Serious: No
  Sender: FDA-Public Use
  Company Number: US-B.I. PHARMACEUTICALS,INC./RIDGEFIELD-2009-BP-08904BP

PATIENT
  Sex: Male
  Weight: 72.12 kg

DRUGS (10)
  1. FLOMAX [Suspect]
     Indication: PROSTATIC SPECIFIC ANTIGEN INCREASED
     Dosage: 0.4 MG
     Route: 048
     Dates: start: 20090720
  2. FLOMAX [Suspect]
     Indication: POLLAKIURIA
  3. SINGULAIR [Concomitant]
     Indication: HYPERSENSITIVITY
  4. CETIRIZINE (ZYRTEC GENERIC) [Concomitant]
     Indication: HYPERSENSITIVITY
  5. LORAZEPAM [Concomitant]
     Indication: ANXIETY
  6. METOPROLOL TARTRATE [Concomitant]
     Indication: HYPERTENSION
  7. LISINOPRIL [Concomitant]
     Indication: HYPERTENSION
  8. HYDROCODONE BITARTRATE [Concomitant]
     Indication: BACK PAIN
  9. ONDANSETRON [Concomitant]
     Indication: NAUSEA
  10. NEFAZODONE HCL [Concomitant]
     Indication: DEPRESSION

REACTIONS (3)
  - DRUG INEFFECTIVE [None]
  - NOCTURIA [None]
  - POLLAKIURIA [None]
